FAERS Safety Report 10880927 (Version 2)
Quarter: 2015Q1

REPORT INFORMATION
  Report Type: Spontaneous
  Country: DZ (occurrence: DZ)
  Receive Date: 20150303
  Receipt Date: 20150310
  Transmission Date: 20150721
  Serious: Yes (Death)
  Sender: FDA-Public Use
  Company Number: DZ-ROCHE-1547415

PATIENT
  Age: 44 Year
  Sex: Female

DRUGS (5)
  1. ACTILYSE [Suspect]
     Active Substance: ALTEPLASE
     Indication: MYOCARDIAL INFARCTION
  2. LOVENOX [Concomitant]
     Active Substance: ENOXAPARIN SODIUM
     Indication: EMBOLISM
     Dosage: DOSE: 0.6 U
     Route: 065
     Dates: start: 20150219, end: 20150219
  3. ACTILYSE [Suspect]
     Active Substance: ALTEPLASE
     Indication: PULMONARY EMBOLISM
     Route: 042
     Dates: start: 20150219
  4. SALINE SOLUTION [Concomitant]
     Active Substance: SODIUM CHLORIDE
     Indication: BLOOD PRESSURE DECREASED
     Route: 065
     Dates: start: 20150219, end: 20150219
  5. ACTILYSE [Suspect]
     Active Substance: ALTEPLASE
     Indication: ISCHAEMIC STROKE

REACTIONS (1)
  - Death [Fatal]

NARRATIVE: CASE EVENT DATE: 20150219
